FAERS Safety Report 7724795-4 (Version None)
Quarter: 2011Q3

REPORT INFORMATION
  Report Type: 
  Country: None (occurrence: None)
  Receive Date: 20110901
  Receipt Date: 20110823
  Transmission Date: 20111222
  Serious: Yes (Hospitalization)
  Sender: FDA-Public Use
  Company Number: JP-ELI_LILLY_AND_COMPANY-JP201108007128

PATIENT
  Age: 61 Year
  Sex: Female
  Weight: 45 kg

DRUGS (15)
  1. PIRFENIDONE [Concomitant]
     Indication: INTERSTITIAL LUNG DISEASE
     Dosage: UNK
     Route: 048
  2. GLYCORAN [Concomitant]
     Indication: DIABETES MELLITUS
     Dosage: UNK
     Route: 048
  3. ZETIA [Concomitant]
     Dosage: UNK
     Route: 048
  4. TADALAFIL [Suspect]
     Indication: PULMONARY ARTERIAL HYPERTENSION
     Dosage: 40 MG, QD
     Route: 048
     Dates: start: 20110522, end: 20110523
  5. TADALAFIL [Suspect]
     Dosage: 20 MG, QD
     Route: 048
     Dates: start: 20110524, end: 20110603
  6. NEORAL [Concomitant]
     Indication: INTERSTITIAL LUNG DISEASE
     Dosage: UNK
     Route: 048
  7. ALENDRONATE SODIUM [Concomitant]
     Dosage: 35 MG, WEEKLY (1/W)
     Route: 048
  8. AMARYL [Concomitant]
     Indication: DIABETES MELLITUS
     Dosage: UNK
     Route: 048
  9. DIOVAN [Concomitant]
     Indication: HYPERTENSION
     Dosage: UNK
     Route: 048
  10. OXYGEN [Concomitant]
     Indication: INTERSTITIAL LUNG DISEASE
     Route: 055
  11. RABEPRAZOLE SODIUM [Concomitant]
     Dosage: UNK
     Route: 048
  12. PRAVASTATIN SODIUM [Concomitant]
     Dosage: UNK
     Route: 048
  13. BACTRIM [Concomitant]
     Dosage: UNK
     Route: 048
  14. PREDNISOLONE [Concomitant]
     Indication: INTERSTITIAL LUNG DISEASE
     Dosage: 20 MG, QOD
     Route: 048
  15. BASEN [Concomitant]
     Indication: DIABETES MELLITUS
     Dosage: UNK
     Route: 048

REACTIONS (1)
  - CARDIAC FAILURE [None]
